FAERS Safety Report 9156664 (Version 1)
Quarter: 2013Q1

REPORT INFORMATION
  Report Type: Spontaneous
  Country: US (occurrence: None)
  Receive Date: 20130208
  Receipt Date: 20130208
  Transmission Date: 20140127
  Serious: Yes (Hospitalization, Other)
  Sender: FDA-Public Use
  Company Number: CLCY20130017

PATIENT
  Age: 67 Year
  Sex: Female

DRUGS (12)
  1. COLCRYS [Suspect]
     Indication: GOUT
     Route: 048
     Dates: start: 201301, end: 201301
  2. ALLOPURINOL [Suspect]
     Indication: GOUT
     Dosage: 1 IN 1 DAY
  3. ASPIRIN [Concomitant]
  4. VITAMIN D3 [Concomitant]
  5. FENTANYL [Concomitant]
  6. TRAZODONE [Concomitant]
  7. LASIX [Concomitant]
  8. LISINOPRIL [Concomitant]
  9. POTASSIUM CHLORIDE [Concomitant]
  10. RANITIDINE [Concomitant]
  11. ZOLOFT [Concomitant]
  12. PRAVASTATIN [Concomitant]

REACTIONS (10)
  - Acute myocardial infarction [None]
  - Renal failure acute [None]
  - Dehydration [None]
  - Vomiting [None]
  - Confusional state [None]
  - Dysarthria [None]
  - Tremor [None]
  - Hypoaesthesia [None]
  - Dyspnoea [None]
  - Blood glucose increased [None]
